FAERS Safety Report 5241233-4 (Version None)
Quarter: 2007Q1

REPORT INFORMATION
  Report Type: 
  Country: None (occurrence: None)
  Receive Date: 20070212
  Receipt Date: 20070212
  Transmission Date: 20070707
  Serious: No
  Sender: FDA-Public Use
  Company Number: None

PATIENT
  Age: 27 Year
  Sex: Male
  Weight: 181.4388 kg

DRUGS (1)
  1. QUETIAPINE FUMARATE [Suspect]
     Dosage: 75 MG QD PO
     Route: 048

REACTIONS (2)
  - VERTIGO [None]
  - VISION BLURRED [None]
